FAERS Safety Report 15716833 (Version 2)
Quarter: 2019Q2

REPORT INFORMATION
  Report Type: Report from Study
  Country: US (occurrence: US)
  Receive Date: 20181213
  Receipt Date: 20190610
  Transmission Date: 20190711
  Serious: Yes (Other)
  Sender: FDA-Public Use
  Company Number: US-SUN PHARMACEUTICAL INDUSTRIES LTD-2018R1-193456

PATIENT
  Age: 17 Year
  Sex: Male

DRUGS (2)
  1. ABSORICA [Suspect]
     Active Substance: ISOTRETINOIN
     Indication: SCAR
  2. ABSORICA [Suspect]
     Active Substance: ISOTRETINOIN
     Indication: ACNE CYSTIC
     Dosage: 40 MILLIGRAM, QD
     Route: 048
     Dates: start: 20181015, end: 20181112

REACTIONS (1)
  - Crohn^s disease [Recovering/Resolving]

NARRATIVE: CASE EVENT DATE: 20181110
